FAERS Safety Report 5297700-0 (Version None)
Quarter: 2007Q2

REPORT INFORMATION
  Report Type: 
  Country: None (occurrence: None)
  Receive Date: 20070412
  Receipt Date: 20070412
  Transmission Date: 20071010
  Serious: No
  Sender: FDA-Public Use
  Company Number: None

PATIENT
  Age: 34 Year
  Sex: Male

DRUGS (1)
  1. NEFAZODONE HCL [Suspect]
     Dosage: 50MG EVERY DAY PO
     Route: 048
     Dates: start: 20070214, end: 20070326

REACTIONS (2)
  - OCULOGYRATION [None]
  - SWOLLEN TONGUE [None]
